FAERS Safety Report 7306622-2 (Version None)
Quarter: 2011Q1

REPORT INFORMATION
  Report Type: 
  Country: None (occurrence: None)
  Receive Date: 20110222
  Receipt Date: 20110215
  Transmission Date: 20110831
  Serious: Yes (Other)
  Sender: FDA-Public Use
  Company Number: US-PFIZER INC-2010169119

PATIENT
  Sex: Female
  Weight: 102 kg

DRUGS (13)
  1. SOLU-MEDROL [Suspect]
     Indication: MULTIPLE SCLEROSIS RELAPSE
     Dosage: UNK
     Route: 042
     Dates: start: 20100101, end: 20100101
  2. COPAXONE [Concomitant]
     Indication: MULTIPLE SCLEROSIS
     Dosage: 20 MG, UNK
     Route: 058
     Dates: start: 20050125
  3. TRAZODONE [Concomitant]
     Dosage: UNK
  4. NAPROXEN [Concomitant]
  5. NEURONTIN [Concomitant]
     Dosage: UNK
  6. PREDNISONE [Suspect]
     Indication: MULTIPLE SCLEROSIS RELAPSE
     Dosage: 20-60 MG, 1-3 X DAY
     Route: 048
     Dates: end: 20100801
  7. VITAMIN B-12 [Concomitant]
  8. METFORMIN [Concomitant]
     Dosage: UNK
  9. PRISTIQ [Concomitant]
     Dosage: 50 UNK, 1X/DAY
  10. SIMVASTATIN [Concomitant]
     Dosage: UNK
  11. CALCIUM CITRATE [Concomitant]
  12. LEVSIN [Concomitant]
     Dosage: UNK
  13. VITAMIN D [Concomitant]

REACTIONS (9)
  - MULTIPLE SCLEROSIS RELAPSE [None]
  - RASH [None]
  - HAEMORRHAGE [None]
  - URINARY INCONTINENCE [None]
  - MADAROSIS [None]
  - ALOPECIA [None]
  - SKIN DISORDER [None]
  - HYPERGLYCAEMIA [None]
  - DRUG INEFFECTIVE [None]
